FAERS Safety Report 23751069 (Version 1)
Quarter: 2024Q2

REPORT INFORMATION
  Report Type: Spontaneous
  Country: US (occurrence: US)
  Receive Date: 20240417
  Receipt Date: 20240417
  Transmission Date: 20240716
  Serious: No
  Sender: FDA-Public Use
  Company Number: US-LEO Pharma-369523

PATIENT
  Sex: Male

DRUGS (1)
  1. PROTOPIC [Suspect]
     Active Substance: TACROLIMUS
     Indication: Vitiligo
     Dosage: 0.1 %

REACTIONS (4)
  - Application site warmth [Unknown]
  - Product use in unapproved indication [Unknown]
  - Application site pain [Unknown]
  - Drug ineffective for unapproved indication [Unknown]
